FAERS Safety Report 8638155 (Version 5)
Quarter: 2012Q4

REPORT INFORMATION
  Report Type: Report from Study
  Country: DE (occurrence: DE)
  Receive Date: 20120627
  Receipt Date: 20120926
  Transmission Date: 20130627
  Serious: Yes (Life-Threatening, Hospitalization, Other)
  Sender: FDA-Public Use
  Company Number: DE-NOVOPROD-354060

PATIENT
  Age: 10 Year
  Sex: Male
  Weight: 48.9 kg

DRUGS (3)
  1. INSULIN DETEMIR [Suspect]
     Indication: TYPE 1 DIABETES MELLITUS
     Dosage: 18 U, qd
     Dates: start: 20120612
  2. INSULIN DETEMIR [Suspect]
     Dosage: 15 UNK, qd
  3. NOVORAPID [Suspect]
     Indication: TYPE 1 DIABETES MELLITUS
     Dosage: 22 U, qd
     Dates: start: 20120612

REACTIONS (1)
  - Hypoglycaemic seizure [Recovered/Resolved]
